FAERS Safety Report 5546831-6 (Version None)
Quarter: 2007Q4

REPORT INFORMATION
  Report Type: 
  Country: None (occurrence: None)
  Receive Date: 20071211
  Receipt Date: 20071129
  Transmission Date: 20080405
  Serious: Yes (Other)
  Sender: FDA-Public Use
  Company Number: US-PFIZER INC-2007101415

PATIENT
  Sex: Female

DRUGS (11)
  1. DEPO-MEDROL [Suspect]
     Indication: FOOT OPERATION
  2. DEPO-MEDROL [Suspect]
     Indication: PAIN
  3. DEPO-MEDROL [Suspect]
     Indication: INFLAMMATION
  4. ASACOL [Concomitant]
  5. LIBRAX [Concomitant]
  6. PREMARIN [Concomitant]
  7. PLAVIX [Concomitant]
  8. PERCOCET [Concomitant]
  9. TYLENOL W/ CODEINE NO. 3 [Concomitant]
  10. TYLENOL W/ CODEINE NO. 4 [Concomitant]
  11. VICODIN [Concomitant]

REACTIONS (8)
  - ERYTHEMA [None]
  - FEELING HOT [None]
  - HYPERSENSITIVITY [None]
  - INTERVERTEBRAL DISC COMPRESSION [None]
  - LIPOMA [None]
  - OCULAR HYPERAEMIA [None]
  - POOR PERIPHERAL CIRCULATION [None]
  - SWELLING FACE [None]
